FAERS Safety Report 7640217-6 (Version None)
Quarter: 2011Q3

REPORT INFORMATION
  Report Type: 
  Country: None (occurrence: None)
  Receive Date: 20110728
  Receipt Date: 20110720
  Transmission Date: 20111222
  Serious: Yes (Death, Other)
  Sender: FDA-Public Use
  Company Number: US-BAYER-200939674NA

PATIENT
  Age: 76 Year
  Sex: Female
  Weight: 82 kg

DRUGS (13)
  1. ZOCOR [Concomitant]
     Dosage: 20 MG, QD
     Route: 048
  2. HEPARIN [Concomitant]
     Dosage: 32,500 UNITS
     Route: 042
     Dates: start: 20040611
  3. FUROSEMIDUM [FUROSEMIDE] [Concomitant]
     Dosage: 40 MG, QD
     Route: 048
  4. ASPIRIN [Concomitant]
     Dosage: UNK
     Route: 048
  5. MILRINONE [Concomitant]
     Dosage: 0.375MCG/KG/ML
     Route: 042
     Dates: start: 20040611
  6. TRASYLOL [Suspect]
     Indication: CORONARY ARTERY BYPASS
     Dosage: TEST DOSE 1ML STARTED @ 0720, LOADING DOSE 200ML OVER 20 MINUTES, FOLLOWED BY DRIP 50ML/HR
     Route: 042
     Dates: start: 20040611, end: 20040611
  7. TRASYLOL [Suspect]
     Indication: MITRAL VALVE REPAIR
  8. TRASYLOL [Suspect]
     Indication: MITRAL VALVE REPLACEMENT
  9. PRANDIN [DEFLAZACORT] [Concomitant]
     Route: 048
  10. PROTAMINE SULFATE [Concomitant]
     Dosage: UNK
     Route: 042
     Dates: start: 20040611
  11. CARDIZEM [Concomitant]
     Dosage: 240 MG, QD
     Route: 048
  12. ACCUPRIL [Concomitant]
     Dosage: 10 MG, QD
     Route: 048
  13. INSULIN [INSULIN] [Concomitant]
     Dosage: UNK
     Route: 042
     Dates: start: 20040611

REACTIONS (14)
  - RENAL IMPAIRMENT [None]
  - FEAR [None]
  - ANHEDONIA [None]
  - EMOTIONAL DISTRESS [None]
  - PAIN [None]
  - INJURY [None]
  - RENAL INJURY [None]
  - RENAL FAILURE [None]
  - DEATH [None]
  - MULTI-ORGAN FAILURE [None]
  - RENAL FAILURE ACUTE [None]
  - STRESS [None]
  - UNEVALUABLE EVENT [None]
  - ANXIETY [None]
